FAERS Safety Report 24328729 (Version 1)
Quarter: 2024Q3

REPORT INFORMATION
  Report Type: Spontaneous
  Country: US (occurrence: None)
  Receive Date: 20240917
  Receipt Date: 20240917
  Transmission Date: 20241017
  Serious: Yes (Life-Threatening, Disabling, Other)
  Sender: Public
  Company Number: None

PATIENT
  Age: 20 Year
  Sex: Female
  Weight: 53.1 kg

DRUGS (13)
  1. MONTELUKAST [Suspect]
     Active Substance: MONTELUKAST SODIUM
     Indication: Asthma
     Dosage: OTHER QUANTITY : 1 TABLET(S)?FREQUENCY : AT BEDTIME;
     Route: 048
     Dates: start: 20160901
  2. MONTELUKAST [Suspect]
     Active Substance: MONTELUKAST SODIUM
     Indication: Hypersensitivity
  3. MONTELUKAST SODIUM [Suspect]
     Active Substance: MONTELUKAST\MONTELUKAST SODIUM
  4. MONTELUKAST [Suspect]
     Active Substance: MONTELUKAST SODIUM
  5. SINGULAIR [Concomitant]
  6. symbacourt [Concomitant]
  7. incruz inhalers [Concomitant]
  8. VITAMIN C [Concomitant]
     Active Substance: ASCORBIC ACID
  9. D [Concomitant]
  10. MAGNESIUM [Concomitant]
     Active Substance: MAGNESIUM
  11. b12 [Concomitant]
  12. PYRIDOXINE HYDROCHLORIDE [Concomitant]
     Active Substance: PYRIDOXINE HYDROCHLORIDE
  13. daily vitamin [Concomitant]

REACTIONS (11)
  - Anxiety [None]
  - Panic attack [None]
  - Formication [None]
  - Speech disorder [None]
  - Disturbance in attention [None]
  - Insomnia [None]
  - Pruritus [None]
  - Palpitations [None]
  - Withdrawal syndrome [None]
  - Poor school attendance [None]
  - Impaired work ability [None]

NARRATIVE: CASE EVENT DATE: 20240801
